APPROVED DRUG PRODUCT: RAU-SED
Active Ingredient: RESERPINE
Strength: 1MG
Dosage Form/Route: TABLET;ORAL
Application: N009357 | Product #008
Applicant: BRISTOL MYERS SQUIBB CO
Approved: Approved Prior to Jan 1, 1982 | RLD: No | RS: No | Type: DISCN